FAERS Safety Report 8495868-6 (Version None)
Quarter: 2012Q3

REPORT INFORMATION
  Report Type: 
  Country: None (occurrence: None)
  Receive Date: 20120709
  Receipt Date: 20120702
  Transmission Date: 20120928
  Serious: No
  Sender: FDA-Public Use
  Company Number: US-PFIZER INC-2012159335

PATIENT
  Sex: Female

DRUGS (1)
  1. LYRICA [Suspect]
     Dosage: UNK

REACTIONS (4)
  - FIBROMYALGIA [None]
  - DRUG WITHDRAWAL SYNDROME [None]
  - CHILLS [None]
  - PAIN [None]
